FAERS Safety Report 9000695 (Version 1)
Quarter: 2013Q1

REPORT INFORMATION
  Report Type: Spontaneous
  Country: RE (occurrence: RE)
  Receive Date: 20130107
  Receipt Date: 20130107
  Transmission Date: 20140127
  Serious: Yes (Other)
  Sender: FDA-Public Use
  Company Number: RE-JNJFOC-20121213194

PATIENT
  Age: 35 Year
  Sex: Male

DRUGS (1)
  1. DITROPAN [Suspect]
     Indication: HYPERTONIC BLADDER
     Route: 065

REACTIONS (4)
  - Intentional drug misuse [Unknown]
  - Feeling abnormal [Unknown]
  - Intentional overdose [Unknown]
  - Palpitations [Unknown]
